FAERS Safety Report 4334588-6 (Version None)
Quarter: 2004Q2

REPORT INFORMATION
  Report Type: 
  Country: None (occurrence: None)
  Receive Date: 20040407
  Receipt Date: 20040319
  Transmission Date: 20050107
  Serious: Yes (Congenital Anomaly)
  Sender: FDA-Public Use
  Company Number: US-BRISTOL-MYERS SQUIBB COMPANY-12539623

PATIENT
  Sex: Male
  Weight: 2 kg

DRUGS (4)
  1. VIDEX [Suspect]
     Dosage: EXPOSURE BEGAN AT CONCEPTION.
     Route: 064
     Dates: end: 20040311
  2. COMBIVIR [Suspect]
     Route: 064
     Dates: start: 20031007, end: 20040311
  3. EPIVIR [Suspect]
     Dosage: EXPOSURE BEGAN AT CONCEPTION.
     Route: 064
     Dates: end: 20031007
  4. VIREAD [Suspect]
     Dosage: EXPOSURE BEGAN AT CONCEPTION.
     Route: 064
     Dates: end: 20040311

REACTIONS (3)
  - CONGENITAL ANOMALY [None]
  - DRUG EXPOSURE DURING PREGNANCY [None]
  - HYDRONEPHROSIS [None]
